FAERS Safety Report 11898860 (Version 1)
Quarter: 2016Q1

REPORT INFORMATION
  Report Type: Spontaneous
  Country: FR (occurrence: FR)
  Receive Date: 20160108
  Receipt Date: 20160108
  Transmission Date: 20160526
  Serious: Yes (Hospitalization)
  Sender: FDA-Public Use
  Company Number: FR-SA-2016SA002188

PATIENT
  Age: 77 Year
  Sex: Female

DRUGS (10)
  1. AMLOR [Suspect]
     Active Substance: AMLODIPINE BESYLATE
     Route: 048
     Dates: start: 201504, end: 201505
  2. RISORDAN [Concomitant]
     Active Substance: ISOSORBIDE DINITRATE
     Route: 042
     Dates: start: 201504, end: 201504
  3. KARDEGIC [Concomitant]
     Active Substance: ASPIRIN LYSINE
  4. RAMIPRIL. [Suspect]
     Active Substance: RAMIPRIL
     Route: 048
     Dates: start: 201504, end: 201505
  5. HEPARIN SODIUM. [Concomitant]
     Active Substance: HEPARIN SODIUM
     Route: 042
     Dates: start: 201504, end: 201504
  6. PLAVIX [Suspect]
     Active Substance: CLOPIDOGREL BISULFATE
     Route: 048
     Dates: start: 201504, end: 201505
  7. TAHOR [Suspect]
     Active Substance: ATORVASTATIN CALCIUM
     Route: 048
     Dates: start: 201504, end: 201505
  8. XENETIX [Concomitant]
     Active Substance: IOBITRIDOL
     Route: 042
     Dates: start: 201504, end: 201504
  9. BISOCE [Concomitant]
     Active Substance: BISOPROLOL
  10. INEXIUM [Concomitant]
     Active Substance: ESOMEPRAZOLE

REACTIONS (5)
  - Acute kidney injury [Recovering/Resolving]
  - Liver injury [Recovered/Resolved]
  - Hyponatraemia [Unknown]
  - Pancreatitis [Recovered/Resolved]
  - Hypokalaemia [Unknown]

NARRATIVE: CASE EVENT DATE: 20150501
